FAERS Safety Report 20480607 (Version 1)
Quarter: 2022Q1

REPORT INFORMATION
  Report Type: Spontaneous
  Country: JP (occurrence: JP)
  Receive Date: 20220216
  Receipt Date: 20220216
  Transmission Date: 20220423
  Serious: Yes (Hospitalization)
  Sender: FDA-Public Use
  Company Number: JP-Eisai-202111666_LEN-HCC_P_1

PATIENT
  Sex: Male
  Weight: 49 kg

DRUGS (1)
  1. LENVIMA [Suspect]
     Active Substance: LENVATINIB
     Indication: Hepatocellular carcinoma
     Route: 048
     Dates: start: 20190829, end: 20191122

REACTIONS (2)
  - Malaise [Not Recovered/Not Resolved]
  - Decreased appetite [Recovered/Resolved]
